FAERS Safety Report 9515113 (Version 1)
Quarter: 2013Q3

REPORT INFORMATION
  Report Type: Spontaneous
  Country: GB (occurrence: GB)
  Receive Date: 20130911
  Receipt Date: 20130911
  Transmission Date: 20140515
  Serious: Yes (Disabling, Other)
  Sender: FDA-Public Use
  Company Number: GB-ELI_LILLY_AND_COMPANY-GB201309000148

PATIENT
  Sex: Female

DRUGS (1)
  1. FLUOXETINE [Suspect]
     Dosage: 20 G, UNKNOWN
     Route: 048
     Dates: start: 2010, end: 2010

REACTIONS (2)
  - Abnormal behaviour [Not Recovered/Not Resolved]
  - Psychotic disorder [Not Recovered/Not Resolved]
